FAERS Safety Report 19744399 (Version 1)
Quarter: 2021Q3

REPORT INFORMATION
  Report Type: Spontaneous
  Country: US (occurrence: US)
  Receive Date: 20210825
  Receipt Date: 20210825
  Transmission Date: 20211014
  Serious: No
  Sender: FDA-Public Use
  Company Number: US-PERRIGO-21US000984

PATIENT
  Age: 55 Year
  Sex: Female
  Weight: 72.56 kg

DRUGS (3)
  1. EVAMIST [Suspect]
     Active Substance: ESTRADIOL
     Indication: HORMONE REPLACEMENT THERAPY
     Dosage: 1.53 MG, BID
     Route: 062
     Dates: start: 202009, end: 20210114
  2. SYNTHROID [Concomitant]
     Active Substance: LEVOTHYROXINE SODIUM
     Indication: THYROID DISORDER
     Dosage: UNKNOWN, UNKNOWN
     Route: 065
  3. EVAMIST [Suspect]
     Active Substance: ESTRADIOL
     Dosage: UNKNOWN, BID
     Route: 062
     Dates: start: 20210115

REACTIONS (2)
  - Inappropriate schedule of product administration [Unknown]
  - Underdose [Unknown]

NARRATIVE: CASE EVENT DATE: 202009
